APPROVED DRUG PRODUCT: ITOVEBI
Active Ingredient: INAVOLISIB
Strength: 9MG
Dosage Form/Route: TABLET;ORAL
Application: N219249 | Product #002
Applicant: GENENTECH INC
Approved: Oct 10, 2024 | RLD: Yes | RS: Yes | Type: RX

PATENTS:
Patent 11760753 | Expires: Jul 1, 2036
Patent 12410189 | Expires: Jun 14, 2038
Patent 9650393 | Expires: Jul 1, 2036
Patent 8343955 | Expires: Sep 27, 2030
Patent 10851091 | Expires: Jul 1, 2036
Patent 8242104 | Expires: Sep 27, 2030
Patent 11028100 | Expires: Apr 26, 2038

EXCLUSIVITY:
Code: NCE | Date: Oct 10, 2029